FAERS Safety Report 9133635 (Version 1)
Quarter: 2013Q1

REPORT INFORMATION
  Report Type: Spontaneous
  Country: CA (occurrence: CA)
  Receive Date: 20130125
  Receipt Date: 20130125
  Transmission Date: 20140127
  Serious: Yes (Hospitalization)
  Sender: FDA-Public Use
  Company Number: CA-B.I. PHARMACEUTICALS,INC./RIDGEFIELD-2013-CN-00106CN

PATIENT
  Age: 91 Year
  Sex: Female
  Weight: 47.17 kg

DRUGS (4)
  1. PRADAX [Suspect]
     Dosage: 220 MG
     Route: 065
  2. WARFARIN [Suspect]
     Route: 065
  3. WARFARIN [Suspect]
     Route: 065
  4. METOPROLOL [Concomitant]

REACTIONS (8)
  - Activated partial thromboplastin time prolonged [Recovered/Resolved with Sequelae]
  - Aphasia [Recovered/Resolved with Sequelae]
  - Cerebral infarction [Recovered/Resolved with Sequelae]
  - Confusional state [Recovered/Resolved with Sequelae]
  - Gastrointestinal haemorrhage [Recovered/Resolved with Sequelae]
  - Haemoglobin decreased [Recovered/Resolved with Sequelae]
  - Product substitution issue [Recovered/Resolved with Sequelae]
  - Thrombin time prolonged [Recovered/Resolved with Sequelae]
